FAERS Safety Report 8535669-3 (Version None)
Quarter: 2012Q2

REPORT INFORMATION
  Report Type: 
  Country: None (occurrence: None)
  Receive Date: 20120412
  Receipt Date: 20100811
  Transmission Date: 20120825
  Serious: Yes (Other)
  Sender: FDA-Public Use
  Company Number: PHHY2010US52581

PATIENT
  Age: 54 Year
  Sex: Female

DRUGS (1)
  1. ESTALIS COMBIPATCH(ESTRADIOL, NORETHISTERONE ACETATE) TRANS-THERAPEUTI [Suspect]
     Dosage: TRANSDERMAL
     Route: 062

REACTIONS (8)
  - HEADACHE [None]
  - INSOMNIA [None]
  - ENDOMETRIAL CANCER [None]
  - MOOD SWINGS [None]
  - HOT FLUSH [None]
  - IRRITABILITY [None]
  - HYSTERECTOMY [None]
  - NIGHT SWEATS [None]
